FAERS Safety Report 11198734 (Version 2)
Quarter: 2015Q3

REPORT INFORMATION
  Report Type: Report from Study
  Country: US (occurrence: US)
  Receive Date: 20150618
  Receipt Date: 20150916
  Transmission Date: 20151125
  Serious: Yes (Hospitalization, Other)
  Sender: FDA-Public Use
  Company Number: US-SANOFI-AVENTIS-2013SA091697

PATIENT
  Age: 50 Year
  Sex: Male

DRUGS (7)
  1. IBUPROFEN. [Concomitant]
     Active Substance: IBUPROFEN
     Indication: PAIN
     Dosage: 800 MG?START DATE: 1 YEAR
  2. AUBAGIO [Suspect]
     Active Substance: TERIFLUNOMIDE
     Indication: MULTIPLE SCLEROSIS
     Route: 048
     Dates: start: 20130607, end: 20131231
  3. AMPYRA [Concomitant]
     Active Substance: DALFAMPRIDINE
  4. GABAPENTIN. [Concomitant]
     Active Substance: GABAPENTIN
     Indication: MUSCLE SPASMS
     Dosage: 300 MG?START DATE: 1 YEAR
  5. TEMAZEPAM. [Concomitant]
     Active Substance: TEMAZEPAM
     Indication: SLEEP DISORDER
     Dosage: DAILY AT BED?15 MG?START DATE: 1 YEAR
  6. GEMFIBROZIL. [Concomitant]
     Active Substance: GEMFIBROZIL
     Indication: BLOOD CHOLESTEROL
     Dosage: 600 MG?START DATE: 1 YEAR
  7. AUBAGIO [Suspect]
     Active Substance: TERIFLUNOMIDE
     Indication: MULTIPLE SCLEROSIS
     Route: 048
     Dates: start: 20140101

REACTIONS (19)
  - Gait disturbance [Unknown]
  - Fine motor skill dysfunction [Unknown]
  - Blood pressure increased [Unknown]
  - Fall [Unknown]
  - Hypokinesia [Unknown]
  - Visual acuity reduced [Unknown]
  - Dysgraphia [Unknown]
  - Cerebral disorder [Unknown]
  - Cystitis [Unknown]
  - Weight increased [Unknown]
  - Temperature intolerance [Unknown]
  - Stress urinary incontinence [Unknown]
  - Balance disorder [Unknown]
  - Hemiparesis [Unknown]
  - Multiple sclerosis relapse [Not Recovered/Not Resolved]
  - Memory impairment [Not Recovered/Not Resolved]
  - Hypoaesthesia [Not Recovered/Not Resolved]
  - Hyperglycaemia [Not Recovered/Not Resolved]
  - Condition aggravated [Not Recovered/Not Resolved]

NARRATIVE: CASE EVENT DATE: 201409
